FAERS Safety Report 7623007-X (Version None)
Quarter: 2011Q3

REPORT INFORMATION
  Report Type: 
  Country: None (occurrence: None)
  Receive Date: 20110720
  Receipt Date: 20110718
  Transmission Date: 20111222
  Serious: Yes (Life-Threatening, Hospitalization)
  Sender: FDA-Public Use
  Company Number: MT-SANOFI-AVENTIS-2011SA045442

PATIENT
  Age: 59 Year
  Sex: Male

DRUGS (5)
  1. ENOXAPARIN SODIUM [Suspect]
     Route: 042
     Dates: start: 20110713, end: 20110713
  2. ASPIRIN [Concomitant]
     Indication: PERCUTANEOUS CORONARY INTERVENTION
     Route: 048
     Dates: start: 20110713, end: 20110713
  3. CLOPIDOGREL [Concomitant]
     Indication: PERCUTANEOUS CORONARY INTERVENTION
     Route: 048
     Dates: start: 20110713, end: 20110713
  4. HMG COA REDUCTASE INHIBITORS [Concomitant]
     Route: 048
  5. ACE INHIBITOR NOS [Concomitant]

REACTIONS (3)
  - CORONARY ARTERY THROMBOSIS [None]
  - CHEST PAIN [None]
  - OFF LABEL USE [None]
